APPROVED DRUG PRODUCT: HYDROCORTISONE
Active Ingredient: HYDROCORTISONE
Strength: 1%
Dosage Form/Route: LOTION;TOPICAL
Application: A085282 | Product #002
Applicant: MERICON INDUSTRIES INC
Approved: Feb 26, 1987 | RLD: No | RS: No | Type: DISCN